FAERS Safety Report 6460791-5 (Version None)
Quarter: 2009Q4

REPORT INFORMATION
  Report Type: 
  Country: None (occurrence: None)
  Receive Date: 20091112
  Receipt Date: 20091026
  Transmission Date: 20100525
  Serious: Yes (Other)
  Sender: FDA-Public Use
  Company Number: OMX-2009-00075

PATIENT
  Age: 65 Year
  Sex: Male

DRUGS (3)
  1. EVICEL [Suspect]
     Indication: HAEMOSTASIS
     Dosage: 1 ML, ONCE, TOPICAL
     Route: 061
     Dates: start: 20090112, end: 20090112
  2. EVICEL [Suspect]
     Indication: PTERYGIUM OPERATION
     Dosage: 1 ML, ONCE, TOPICAL
     Route: 061
     Dates: start: 20090112, end: 20090112
  3. EVICEL [Suspect]
     Indication: WOUND CLOSURE
     Dosage: 1 ML, ONCE, TOPICAL
     Route: 061
     Dates: start: 20090112, end: 20090112

REACTIONS (2)
  - OFF LABEL USE [None]
  - WOUND DEHISCENCE [None]
